FAERS Safety Report 19252841 (Version 1)
Quarter: 2021Q2

REPORT INFORMATION
  Report Type: Spontaneous
  Country: US (occurrence: US)
  Receive Date: 20210513
  Receipt Date: 20210513
  Transmission Date: 20210717
  Serious: No
  Sender: FDA-Public Use
  Company Number: None

PATIENT
  Age: 58 Year
  Sex: Male
  Weight: 102.1 kg

DRUGS (3)
  1. ETESEVIMAB. [Suspect]
     Active Substance: ETESEVIMAB
     Indication: COVID-19
     Dosage: ?          OTHER FREQUENCY:ONCE;?
     Route: 042
     Dates: start: 20210512, end: 20210512
  2. BAMLANIVIMAB. [Suspect]
     Active Substance: BAMLANIVIMAB
     Indication: COVID-19
     Dosage: ?          OTHER FREQUENCY:ONCE;?
     Route: 042
     Dates: start: 20210512, end: 20210512
  3. SODIUM CHLORIDE 150 ML [Concomitant]
     Dates: start: 20210512, end: 20210512

REACTIONS (8)
  - Musculoskeletal stiffness [None]
  - Unresponsive to stimuli [None]
  - Pallor [None]
  - Nausea [None]
  - Cold sweat [None]
  - Hyperhidrosis [None]
  - Malaise [None]
  - Vomiting [None]

NARRATIVE: CASE EVENT DATE: 20210512
